FAERS Safety Report 8806603 (Version 1)
Quarter: 2012Q4

REPORT INFORMATION
  Report Type: 
  Country: US (occurrence: US)
  Receive Date: 20120925
  Receipt Date: 20120925
  Transmission Date: 20130627
  Serious: Yes (Other)
  Sender: FDA-Public Use
  Company Number: US-BAYER-2012-097501

PATIENT
  Age: 42 Year
  Sex: Female
  Weight: 129.25 kg

DRUGS (16)
  1. YAZ [Suspect]
     Indication: PREMENSTRUAL SYNDROME
     Dosage: UNK
     Dates: start: 20110109, end: 20110504
  2. YAZ [Suspect]
     Indication: MENORRHAGIA
  3. LEXAPRO [Concomitant]
     Indication: ANXIETY
     Dosage: UNK
     Dates: start: 200910
  4. VICODIN [Concomitant]
     Indication: PAIN
     Dosage: UNK
     Dates: start: 201101
  5. GLUCOSAMINE [Concomitant]
     Indication: ARTHROPATHY
     Dosage: UNK
     Dates: start: 201103
  6. TUMS [CALCIUM CARBONATE] [Concomitant]
     Indication: MINERAL SUPPLEMENTATION
     Dosage: 600 mg, UNK
     Dates: start: 201103
  7. MULTIVITAMIN [Concomitant]
     Indication: VITAMIN SUPPLEMENTATION
     Dosage: UNK
     Dates: start: 201103
  8. AZITHROMYCIN [Concomitant]
     Dosage: 250 mg, UNK
  9. FLUCONAZOLE [Concomitant]
     Dosage: 150 mg, UNK
  10. IBUPROFEN [Concomitant]
     Dosage: 600 mg, TID
  11. CIPROFLOXACIN [Concomitant]
     Dosage: 500 mg, BID
  12. IRON [Concomitant]
     Indication: PAIN
  13. HYDROCODONE W/ACETAMINOPHEN [Concomitant]
     Indication: PAIN
  14. TYLENOL [Concomitant]
  15. MOTRIN [Concomitant]
  16. ALEVE [Concomitant]

REACTIONS (4)
  - Thrombophlebitis superficial [None]
  - Pain in extremity [None]
  - Erythema [None]
  - Oedema peripheral [None]
